FAERS Safety Report 10338207 (Version 1)
Quarter: 2014Q3

REPORT INFORMATION
  Report Type: Spontaneous
  Country: US (occurrence: None)
  Receive Date: 20140723
  Receipt Date: 20140723
  Transmission Date: 20150326
  Serious: Yes (Hospitalization)
  Sender: FDA-Public Use
  Company Number: None

PATIENT
  Age: 51 Year
  Sex: Male

DRUGS (3)
  1. QUETIAPINE [Concomitant]
     Active Substance: QUETIAPINE
  2. OXCARBAZEPINE. [Suspect]
     Active Substance: OXCARBAZEPINE
     Indication: AFFECTIVE DISORDER
     Route: 048
     Dates: start: 20140416, end: 20140504
  3. BUPROPION XL [Concomitant]
     Active Substance: BUPROPION
     Route: 048
     Dates: start: 20140416, end: 20140504

REACTIONS (2)
  - Hyponatraemia [None]
  - Chest pain [None]

NARRATIVE: CASE EVENT DATE: 20140504
